FAERS Safety Report 15794277 (Version 1)
Quarter: 2019Q1

REPORT INFORMATION
  Report Type: Report from Study
  Country: IN (occurrence: IN)
  Receive Date: 20190107
  Receipt Date: 20190107
  Transmission Date: 20190417
  Serious: Yes (Other)
  Sender: FDA-Public Use
  Company Number: IN-ALLERGAN-1900375US

PATIENT
  Age: 65 Year
  Sex: Female

DRUGS (1)
  1. BIMATOPROST 0.01% SOL (9668X) [Suspect]
     Active Substance: BIMATOPROST
     Indication: GLAUCOMA
     Dosage: 1 GTT, UNK
     Route: 047
     Dates: start: 20181229, end: 20190103

REACTIONS (1)
  - Eye disorder [Unknown]
